FAERS Safety Report 8544174-X (Version None)
Quarter: 2012Q3

REPORT INFORMATION
  Report Type: 
  Country: None (occurrence: None)
  Receive Date: 20120718
  Receipt Date: 20120718
  Transmission Date: 20120928
  Serious: No
  Sender: FDA-Public Use
  Company Number: None

PATIENT
  Sex: Female
  Weight: 56.246 kg

DRUGS (3)
  1. HEPARIN SODIUM INJ [Suspect]
     Indication: POST PROCEDURAL COMPLICATION
     Dosage: 11,500 UNITS ONE TIME
     Dates: start: 20120629, end: 20120629
  2. HEPARIN SODIUM INJ [Suspect]
     Indication: ATRIAL FIBRILLATION
     Dosage: 11,500 UNITS ONE TIME
     Dates: start: 20120629, end: 20120629
  3. HEPARIN SODIUM INJ [Suspect]
     Indication: AORTIC STENOSIS
     Dosage: 11,500 UNITS ONE TIME
     Dates: start: 20120629, end: 20120629

REACTIONS (1)
  - DRUG EFFECT DECREASED [None]
